FAERS Safety Report 23683832 (Version 4)
Quarter: 2024Q2

REPORT INFORMATION
  Report Type: Spontaneous
  Country: US (occurrence: None)
  Receive Date: 20240328
  Receipt Date: 20240618
  Transmission Date: 20240716
  Serious: No
  Sender: FDA-Public Use
  Company Number: 2024A075281

PATIENT
  Age: 54 Year
  Sex: Female

DRUGS (1)
  1. TEZEPELUMAB-EKKO [Suspect]
     Active Substance: TEZEPELUMAB-EKKO
     Indication: Asthma
     Dosage: 210.0MG UNKNOWN

REACTIONS (4)
  - Abdominal discomfort [Unknown]
  - Injection site haemorrhage [Unknown]
  - Device issue [Unknown]
  - Drug dose omission by device [Unknown]
